FAERS Safety Report 4599284-9 (Version None)
Quarter: 2005Q1

REPORT INFORMATION
  Report Type: 
  Country: None (occurrence: None)
  Receive Date: 20050302
  Receipt Date: 20050222
  Transmission Date: 20050727
  Serious: Yes (Hospitalization)
  Sender: FDA-Public Use
  Company Number: 2005-125442-NL

PATIENT
  Age: 67 Year
  Sex: Female

DRUGS (8)
  1. MIRTAZAPINE [Suspect]
     Indication: DEPRESSION
     Dosage: 45 MG QD ORAL
     Route: 048
     Dates: start: 20050118
  2. VALPROATE SODIUM [Suspect]
     Indication: EPILEPSY
     Dosage: 2 G BID/1 G BID ORAL
     Route: 048
     Dates: start: 20041201, end: 20050222
  3. VALPROATE SODIUM [Suspect]
     Indication: EPILEPSY
     Dosage: 2 G BID/1 G BID ORAL
     Route: 048
     Dates: start: 20050222
  4. LANSOPRAZOLE [Concomitant]
  5. PHENYTOIN [Concomitant]
  6. METOPROLOL [Concomitant]
  7. IBUPROFEN [Concomitant]
  8. CHLORAMPHENICOL [Concomitant]

REACTIONS (4)
  - ATRIAL FIBRILLATION [None]
  - LOWER RESPIRATORY TRACT INFECTION [None]
  - NEUTROPENIA [None]
  - PHARYNGOLARYNGEAL PAIN [None]
